FAERS Safety Report 14629297 (Version 1)
Quarter: 2018Q1

REPORT INFORMATION
  Report Type: Spontaneous
  Country: US (occurrence: US)
  Receive Date: 20180312
  Receipt Date: 20180312
  Transmission Date: 20180509
  Serious: Yes (Hospitalization)
  Sender: FDA-Public Use
  Company Number: None

PATIENT
  Sex: Male

DRUGS (7)
  1. STOOL SOFTENER, TYLENOL PM [Concomitant]
  2. LORAZEPAM, ONDANSETRON [Concomitant]
  3. PRAVASTATIN, PREDNISONE [Concomitant]
  4. LONSURF [Suspect]
     Active Substance: TIPIRACIL HYDROCHLORIDE\TRIFLURIDINE
     Indication: RECTAL CANCER
     Dosage: ?          OTHER FREQUENCY:BID DAY 1-5 + 8-12;?
     Route: 048
     Dates: start: 20171207
  5. LONSURF [Suspect]
     Active Substance: TIPIRACIL HYDROCHLORIDE\TRIFLURIDINE
     Indication: RECTAL CANCER
     Dosage: ?          OTHER FREQUENCY:BID DAY 1-5 + 8-12;?
     Route: 048
     Dates: start: 20171207
  6. ASPIRIN LOW, DULOXETINE [Concomitant]
  7. HYDROCO/APAP, LEVOTHYROXIN [Concomitant]

REACTIONS (3)
  - Myocardial infarction [None]
  - Red blood cell count decreased [None]
  - White blood cell count decreased [None]
